FAERS Safety Report 4733818-6 (Version None)
Quarter: 2005Q3

REPORT INFORMATION
  Report Type: 
  Country: None (occurrence: None)
  Receive Date: 20050729
  Receipt Date: 20050712
  Transmission Date: 20060218
  Serious: Yes (Death)
  Sender: FDA-Public Use
  Company Number: EWC050744966

PATIENT
  Age: 40 Year
  Sex: Male

DRUGS (6)
  1. OLANZAPINE [Suspect]
     Indication: ABNORMAL BEHAVIOUR
     Dosage: 20 MG DAY
     Dates: start: 20050316, end: 20050703
  2. OLANZAPINE [Suspect]
     Indication: AUTISM
     Dosage: 20 MG DAY
     Dates: start: 20050316, end: 20050703
  3. OLANZAPINE [Suspect]
     Indication: OBSESSIVE-COMPULSIVE DISORDER
     Dosage: 20 MG DAY
     Dates: start: 20050316, end: 20050703
  4. VALIUM [Concomitant]
  5. DEPAKENE [Concomitant]
  6. SEROQUEL [Concomitant]

REACTIONS (5)
  - AGITATION [None]
  - ANXIETY [None]
  - CARDIAC ARREST [None]
  - HYPERVENTILATION [None]
  - SUDDEN DEATH [None]
